FAERS Safety Report 10754621 (Version 3)
Quarter: 2015Q2

REPORT INFORMATION
  Report Type: Spontaneous
  Country: US (occurrence: US)
  Receive Date: 20150202
  Receipt Date: 20150515
  Transmission Date: 20150821
  Serious: Yes (Hospitalization)
  Sender: FDA-Public Use
  Company Number: US-PFIZER INC-2015037339

PATIENT
  Age: 67 Year
  Sex: Female
  Weight: 113 kg

DRUGS (21)
  1. NEURONTIN [Concomitant]
     Active Substance: GABAPENTIN
     Dosage: 300MG (1 CAPSULE) ONCE DAILY
     Dates: start: 201408
  2. TESSALON [Concomitant]
     Active Substance: BENZONATATE
     Indication: COUGH
     Dosage: 200MG (1 CAPSULE) 3 TIMES A DAY AS NEEDED
     Route: 048
  3. EPIPEN [Concomitant]
     Active Substance: EPINEPHRINE
     Indication: ANAPHYLACTIC REACTION
     Dosage: 0.3 MG/0.3ML SOAJ; INJECT 1 SYRINGE INTRAMUSCULARLY 1 TIME WHEN NEEDED
     Route: 030
  4. CALCIUM CARBONATE AND VITAMIN D [Concomitant]
     Dosage: CALCIUM CARBONATE 600MG /COLECALCIFEROL 800 UNIT (1 TABLET) EVERY NIGHT AT BEDTIME
     Route: 048
  5. XELJANZ [Suspect]
     Active Substance: TOFACITINIB CITRATE
     Indication: RHEUMATOID ARTHRITIS
     Dosage: 5 MG, 2X/DAY
     Route: 048
     Dates: start: 20141226, end: 20150111
  6. ASPIRIN. [Concomitant]
     Active Substance: ASPIRIN
     Dosage: 81 MG (1 ENTERIC COATED TABLET) ONCE DAILY
     Route: 048
  7. VENTOLIN [Concomitant]
     Active Substance: ALBUTEROL SULFATE
     Indication: COUGH
     Dosage: INHALE 2 PUFFS ORALLY EVERY 4 TO 6 HOURS AS NEEDED
     Route: 048
  8. NITROSTAT [Concomitant]
     Active Substance: NITROGLYCERIN
     Indication: CHEST PAIN
     Dosage: 0.4 MG, EVERY 5 MINUTES FOR 3 TIMES
     Route: 060
  9. CRESTOR [Concomitant]
     Active Substance: ROSUVASTATIN CALCIUM
     Dosage: 20MG (1 TABLET) ONCE DAILY
     Route: 048
     Dates: start: 201305
  10. TYLENOL EXTRA STRENGTH [Concomitant]
     Active Substance: ACETAMINOPHEN
     Indication: ARTHRITIS
     Dosage: 1000 MG (2 TABLETS) 3 TIMES A DAY AS NEEDED
     Route: 048
  11. XELJANZ [Suspect]
     Active Substance: TOFACITINIB CITRATE
     Dosage: TOOK 1 DOSE (5MG)
     Route: 048
     Dates: start: 20150112, end: 20150112
  12. LEVOTHYROXINE [Concomitant]
     Active Substance: LEVOTHYROXINE
     Dosage: 88 ?G  (1 TABLET) ONCE DAILY
     Route: 048
  13. CALCIUM [Concomitant]
     Active Substance: CALCIUM
     Dosage: UNK
     Dates: start: 1995
  14. VITAMIN D3 [Concomitant]
     Active Substance: CHOLECALCIFEROL
     Dosage: 2000 IU, 1X/DAY
     Route: 048
  15. MUCINEX [Concomitant]
     Active Substance: GUAIFENESIN
     Dosage: 600MG (TABLET, SR 12HR) TWICE DAILY AS NEEDED
     Route: 048
  16. DIOVAN HCT [Concomitant]
     Active Substance: HYDROCHLOROTHIAZIDE\VALSARTAN
     Dosage: VALSARTAN 160MG /HYDROCHLOROTHIAZIDE 12.5MG (1 TABLET) ONCE DAILY
     Route: 048
  17. ZYRTEC [Concomitant]
     Active Substance: CETIRIZINE HYDROCHLORIDE
     Dosage: 10 MG (1 TABLET) TWICE DAILY
     Route: 048
  18. ASCORBIC ACID. [Concomitant]
     Active Substance: ASCORBIC ACID
     Dosage: 1000 MG (1 TABLET ) ONCE DAILY
     Route: 048
  19. TOPROL XL [Concomitant]
     Active Substance: METOPROLOL SUCCINATE
     Dosage: 100MG (1 TABLET, SR 24HR) ONCE DAILY
     Route: 048
     Dates: start: 2000
  20. HYPROMELLOSE [Concomitant]
     Active Substance: HYPROMELLOSES
     Dosage: 1 DROP INTO BOTH EYES 2 TIMES A DAY
     Route: 047
  21. BIOTIN [Concomitant]
     Active Substance: BIOTIN
     Dosage: 1 TABLET ONCE DAILY
     Route: 048

REACTIONS (4)
  - Chest pain [Recovered/Resolved]
  - Hypersensitivity [Recovered/Resolved]
  - Sternitis [Recovered/Resolved]
  - Back pain [Recovered/Resolved]

NARRATIVE: CASE EVENT DATE: 20150109
